FAERS Safety Report 6630756-9 (Version None)
Quarter: 2010Q1

REPORT INFORMATION
  Report Type: 
  Country: None (occurrence: None)
  Receive Date: 20100311
  Receipt Date: 20100301
  Transmission Date: 20100710
  Serious: Yes (Other)
  Sender: FDA-Public Use
  Company Number: JP-TYCO HEALTHCARE/MALLINCKRODT-T201000703

PATIENT
  Age: 3 Year
  Sex: Female

DRUGS (1)
  1. OPTIRAY 350 [Suspect]
     Indication: ANGIOGRAM
     Dosage: UNK, SINGLE
     Route: 013

REACTIONS (1)
  - ANAPHYLACTIC SHOCK [None]
